FAERS Safety Report 14488744 (Version 2)
Quarter: 2018Q3

REPORT INFORMATION
  Report Type: Spontaneous
  Country: US (occurrence: US)
  Receive Date: 20180205
  Receipt Date: 20180801
  Transmission Date: 20181010
  Serious: Yes (Other)
  Sender: FDA-Public Use
  Company Number: US-VIFOR (INTERNATIONAL) INC.-VIT-2018-01059

PATIENT
  Sex: Male

DRUGS (23)
  1. PROAIR HFA [Concomitant]
     Active Substance: ALBUTEROL SULFATE
  2. NITROSTAT [Concomitant]
     Active Substance: NITROGLYCERIN
  3. ATORVASTATIN CALCIUM. [Concomitant]
     Active Substance: ATORVASTATIN CALCIUM
  4. RENVELA [Concomitant]
     Active Substance: SEVELAMER CARBONATE
  5. NEXIUM [Concomitant]
     Active Substance: ESOMEPRAZOLE MAGNESIUM
  6. CARVEDILOL. [Concomitant]
     Active Substance: CARVEDILOL
  7. CEFALEXIN [Concomitant]
     Active Substance: CEPHALEXIN
  8. AMARYL [Concomitant]
     Active Substance: GLIMEPIRIDE
  9. MAGNESIUM HYDROXIDE. [Concomitant]
     Active Substance: MAGNESIUM HYDROXIDE
  10. GLUCAGON. [Concomitant]
     Active Substance: GLUCAGON
  11. HUMALIN R [Concomitant]
  12. METAMUCIL [Concomitant]
     Active Substance: PLANTAGO SEED
  13. ASMANEX [Concomitant]
     Active Substance: MOMETASONE FUROATE
  14. LANTUS [Concomitant]
     Active Substance: INSULIN GLARGINE
  15. TRAMADOL HYDROCHLORIDE. [Concomitant]
     Active Substance: TRAMADOL HYDROCHLORIDE
  16. SERVENT DISKUS [Concomitant]
  17. FISH OIL [Concomitant]
     Active Substance: FISH OIL
  18. VELTASSA [Suspect]
     Active Substance: PATIROMER
     Indication: HYPERKALAEMIA
     Route: 048
     Dates: start: 20160513
  19. SENSIPAR [Concomitant]
     Active Substance: CINACALCET HYDROCHLORIDE
  20. ACETYLSALICYLIC ACID [Concomitant]
     Active Substance: ASPIRIN
  21. BUMETANIDE. [Concomitant]
     Active Substance: BUMETANIDE
  22. CLOPIDOGREL BISULFATE. [Concomitant]
     Active Substance: CLOPIDOGREL BISULFATE
  23. DICYCLOVERINE HYDROCHLORIDE [Concomitant]
     Active Substance: DICYCLOMINE HYDROCHLORIDE

REACTIONS (2)
  - Drug dose omission [Not Recovered/Not Resolved]
  - Dialysis [Not Recovered/Not Resolved]
